FAERS Safety Report 9056179 (Version 1)
Quarter: 2013Q1

REPORT INFORMATION
  Report Type: Report from Study
  Country: JP (occurrence: JP)
  Receive Date: 20130205
  Receipt Date: 20130205
  Transmission Date: 20140127
  Serious: Yes (Life-Threatening, Hospitalization)
  Sender: FDA-Public Use
  Company Number: JP-NOVOPROD-361343

PATIENT
  Age: 56 Year
  Sex: Male
  Weight: 71 kg

DRUGS (17)
  1. LIRAGLUTIDE FLEXPEN [Suspect]
     Indication: TYPE 2 DIABETES MELLITUS
     Dosage: 0.9 MG, QD
     Route: 058
     Dates: start: 20110921, end: 20111031
  2. WARFARIN [Concomitant]
     Route: 048
     Dates: end: 20111101
  3. BAYASPIRIN [Concomitant]
     Route: 048
     Dates: end: 20111101
  4. AMARYL [Concomitant]
     Dosage: 1 MG, QD
     Route: 048
     Dates: start: 20111004, end: 20111101
  5. METGLUCO [Concomitant]
     Indication: TYPE 2 DIABETES MELLITUS
     Dosage: 500 MG, QD
     Route: 048
     Dates: start: 20111004, end: 20111101
  6. ASPENON [Concomitant]
     Dates: end: 20121101
  7. ADALAT CR [Concomitant]
     Dates: end: 20121101
  8. ITOROL [Concomitant]
     Dates: end: 20121101
  9. BLOPRESS [Concomitant]
     Dates: end: 20121101
  10. CRESTOR [Concomitant]
     Dates: end: 20121101
  11. BEPRICOR [Concomitant]
  12. VASOLAN                            /00014302/ [Concomitant]
     Dates: end: 20121101
  13. GRACEPTOR [Concomitant]
     Dates: end: 20121101
  14. CELLCEPT                           /01275102/ [Concomitant]
     Dates: end: 20121101
  15. PARIET [Concomitant]
     Dates: end: 20121101
  16. SENNARIDE [Concomitant]
     Dates: end: 20121101
  17. LAC-B [Concomitant]
     Dates: end: 20121101

REACTIONS (1)
  - Brain stem haemorrhage [Not Recovered/Not Resolved]
